FAERS Safety Report 5157062-6 (Version None)
Quarter: 2006Q4

REPORT INFORMATION
  Report Type: 
  Country: None (occurrence: None)
  Receive Date: 20061127
  Receipt Date: 20060731
  Transmission Date: 20070319
  Serious: Yes (Death, Hospitalization, Other)
  Sender: FDA-Public Use
  Company Number: CA-ELI_LILLY_AND_COMPANY-CA200608000168

PATIENT
  Age: 3 Week
  Sex: Female
  Weight: 0.85 kg

DRUGS (5)
  1. ZYPREXA ZYDIS [Suspect]
     Dosage: UNK MG, UNK
     Route: 064
     Dates: start: 20060311, end: 20060424
  2. CANNABIS [Concomitant]
     Dosage: UNK, UNK
     Route: 064
     Dates: end: 20060311
  3. VITAMINS [Concomitant]
     Dosage: UNK, UNK
     Dates: start: 20060320
  4. FERROUS SULFATE TAB [Concomitant]
  5. NICOTINE [Concomitant]

REACTIONS (7)
  - DRUG EXPOSURE DURING PREGNANCY [None]
  - MATERNAL USE OF ILLICIT DRUGS [None]
  - NEONATAL RESPIRATORY DISTRESS SYNDROME [None]
  - PNEUMONECTOMY [None]
  - PREMATURE BABY [None]
  - SMALL FOR DATES BABY [None]
  - STAPHYLOCOCCAL SEPSIS [None]
